FAERS Safety Report 5259128-9 (Version None)
Quarter: 2007Q1

REPORT INFORMATION
  Report Type: 
  Country: None (occurrence: None)
  Receive Date: 20070308
  Receipt Date: 20070227
  Transmission Date: 20070707
  Serious: Yes (Death, Hospitalization, Disabling, Other)
  Sender: FDA-Public Use
  Company Number: US-PFIZER INC-2007007065

PATIENT
  Sex: Female

DRUGS (1)
  1. CELEBREX [Suspect]
     Indication: ARTHRITIS

REACTIONS (7)
  - ABASIA [None]
  - CARDIAC DISORDER [None]
  - DEATH [None]
  - PNEUMONIA [None]
  - SWELLING [None]
  - URINARY TRACT INFECTION [None]
  - VIRAL INFECTION [None]
